FAERS Safety Report 15476479 (Version 1)
Quarter: 2018Q4

REPORT INFORMATION
  Report Type: Spontaneous
  Country: US (occurrence: US)
  Receive Date: 20181001
  Receipt Date: 20181001
  Transmission Date: 20190205
  Serious: No
  Sender: FDA-Public Use
  Company Number: None

PATIENT
  Age: 55 Year
  Sex: Female

DRUGS (1)
  1. HUMIRA [Suspect]
     Active Substance: ADALIMUMAB
     Indication: MYOCARDITIS INFECTIOUS
     Route: 058
     Dates: start: 20180705, end: 20180917

REACTIONS (4)
  - Dyspnoea [None]
  - Therapy cessation [None]
  - Dysphagia [None]
  - Rash [None]

NARRATIVE: CASE EVENT DATE: 20180914
